FAERS Safety Report 6987757-0 (Version None)
Quarter: 2010Q3

REPORT INFORMATION
  Report Type: 
  Country: None (occurrence: None)
  Receive Date: 20100830
  Receipt Date: 20100114
  Transmission Date: 20110219
  Serious: Yes (Hospitalization, Other)
  Sender: FDA-Public Use
  Company Number: 2010000167

PATIENT
  Age: 36 Year
  Sex: Male

DRUGS (8)
  1. GABITRIL [Suspect]
     Indication: CONVULSION
     Dosage: 12 MG (12 MG,1 IN 1 D),ORAL
     Route: 048
     Dates: start: 19990101
  2. NICOTINE PATCH (NICOTINE) (POULTICE) [Suspect]
     Indication: SMOKING CESSATION THERAPY
     Dosage: (14 MG),TRANSDERMAL ; (21 MG),TRANSDERMAL
     Route: 062
     Dates: start: 20091201, end: 20091201
  3. NICOTINE PATCH (NICOTINE) (POULTICE) [Suspect]
     Indication: SMOKING CESSATION THERAPY
     Dosage: (14 MG),TRANSDERMAL ; (21 MG),TRANSDERMAL
     Route: 062
     Dates: start: 20091201
  4. TEGRETOL [Suspect]
     Indication: CONVULSION
     Dosage: 1600 MG (200 MG,8 IN 1 D),ORAL
     Route: 048
     Dates: start: 19990101
  5. CLORAZEPATE DIPOTASSIUM [Suspect]
     Indication: CONVULSION
     Dosage: 4 OTHER (2 OTHER,2 IN 1 D),ORAL
     Route: 048
     Dates: start: 19990101
  6. ATIVAN [Suspect]
     Indication: CONVULSION
     Dosage: (1 MG,PRN),ORAL
     Route: 048
     Dates: start: 19990101
  7. PHENERGAN [Suspect]
     Indication: NAUSEA
     Dosage: (25 MG,PRN),ORAL
     Route: 048
     Dates: start: 19990101
  8. DIAMOX [Suspect]
     Indication: CONVULSION
     Dosage: 1000 MG (1000 MG,1 IN 1 D),ORAL
     Route: 048
     Dates: start: 19990101

REACTIONS (6)
  - CONVULSION [None]
  - DIZZINESS [None]
  - LOWER LIMB FRACTURE [None]
  - NAUSEA [None]
  - PARTIAL SEIZURES [None]
  - SOMNOLENCE [None]
